FAERS Safety Report 12259473 (Version 1)
Quarter: 2016Q2

REPORT INFORMATION
  Report Type: Spontaneous
  Country: US (occurrence: US)
  Receive Date: 20160412
  Receipt Date: 20160412
  Transmission Date: 20160815
  Serious: No
  Sender: FDA-Public Use
  Company Number: US-SA-2015SA096178

PATIENT
  Sex: Female

DRUGS (1)
  1. ALLEGRA ALLERGY [Suspect]
     Active Substance: FEXOFENADINE HYDROCHLORIDE
     Indication: RASH
     Dosage: DOSE:TAKE 2 ALLEGRA 24 PILLS FOR HER RASHES BUT SHE STATES SHE^S ONLY TAKING 1 PILL
     Route: 065

REACTIONS (1)
  - Drug ineffective [Unknown]
